FAERS Safety Report 8584471-5 (Version None)
Quarter: 2012Q3

REPORT INFORMATION
  Report Type: 
  Country: None (occurrence: None)
  Receive Date: 20120810
  Receipt Date: 20120806
  Transmission Date: 20120928
  Serious: No
  Sender: FDA-Public Use
  Company Number: US-PFIZER INC-2012149653

PATIENT
  Age: 68 Year
  Sex: Female

DRUGS (4)
  1. CRESTOR [Concomitant]
     Dosage: UNK
     Dates: start: 20091101, end: 20111101
  2. PROTONIX [Suspect]
     Indication: GASTROOESOPHAGEAL REFLUX DISEASE
     Dosage: 40 MG, UNK
     Route: 048
     Dates: start: 20060818
  3. LEVOXYL [Concomitant]
     Dosage: 50 UG, DAILY
     Dates: start: 20061101
  4. MULTI-VITAMINS [Concomitant]
     Dosage: UNK

REACTIONS (8)
  - TOOTHACHE [None]
  - GLOSSITIS [None]
  - OEDEMA MOUTH [None]
  - GINGIVITIS [None]
  - LICHEN PLANUS [None]
  - ORAL PAIN [None]
  - ORAL DISCOMFORT [None]
  - ORAL MUCOSAL ERYTHEMA [None]
